FAERS Safety Report 8651595 (Version 3)
Quarter: 2012Q4

REPORT INFORMATION
  Report Type: 
  Country: US (occurrence: US)
  Receive Date: 20120706
  Receipt Date: 20120906
  Transmission Date: 20130627
  Serious: Yes (Other)
  Sender: FDA-Public Use
  Company Number: US-BAYER-2012-066856

PATIENT
  Age: 37 Year
  Sex: Female
  Weight: 149 kg

DRUGS (3)
  1. MIRENA [Suspect]
     Indication: CONTRACEPTION
     Dosage: 20 ?g/d, CONT
     Route: 015
     Dates: start: 20110309, end: 20120713
  2. METFORMIN [Concomitant]
  3. VICODIN [Concomitant]

REACTIONS (2)
  - Pregnancy with contraceptive device [Recovered/Resolved]
  - Abortion spontaneous [None]
